FAERS Safety Report 9322411 (Version 1)
Quarter: 2013Q2

REPORT INFORMATION
  Report Type: Report from Study
  Country: SE (occurrence: SE)
  Receive Date: 20130531
  Receipt Date: 20130531
  Transmission Date: 20140414
  Serious: Yes (Other)
  Sender: FDA-Public Use
  Company Number: SE-ABBOTT-13P-150-1094095-00

PATIENT
  Sex: Male

DRUGS (2)
  1. HUMIRA [Suspect]
     Indication: CROHN^S DISEASE
     Dosage: INDUCTION DOSE: 80MG + 40 MG
     Route: 058
     Dates: start: 20080626
  2. HUMIRA [Suspect]
     Route: 058

REACTIONS (3)
  - Blood creatinine increased [Unknown]
  - Nephritis [Unknown]
  - Glomerulonephritis chronic [Unknown]
